FAERS Safety Report 23354541 (Version 3)
Quarter: 2024Q1

REPORT INFORMATION
  Report Type: Report from Study
  Country: US (occurrence: US)
  Receive Date: 20240101
  Receipt Date: 20240219
  Transmission Date: 20240410
  Serious: Yes (Hospitalization)
  Sender: FDA-Public Use
  Company Number: US-JAZZ PHARMACEUTICALS-2023-US-025463

PATIENT
  Sex: Male

DRUGS (4)
  1. EPIDIOLEX [Suspect]
     Active Substance: CANNABIDIOL
     Indication: Epilepsy
     Dosage: 7.5 MILLILITER, BID
     Route: 048
     Dates: start: 201904
  2. EPIDIOLEX [Suspect]
     Active Substance: CANNABIDIOL
     Indication: Lennox-Gastaut syndrome
     Dosage: 7.5 MILLILITER, BID
     Route: 048
     Dates: start: 201904
  3. EPIDIOLEX [Suspect]
     Active Substance: CANNABIDIOL
     Dosage: 7.6 MILLILITER, BID
     Route: 048
     Dates: start: 201904
  4. RAVICTI [Concomitant]
     Active Substance: GLYCEROL PHENYLBUTYRATE
     Indication: Product used for unknown indication
     Dosage: UNK

REACTIONS (3)
  - Ammonia increased [Not Recovered/Not Resolved]
  - Hospitalisation [Unknown]
  - Nervous system disorder [Unknown]
